FAERS Safety Report 7178923-2 (Version None)
Quarter: 2010Q4

REPORT INFORMATION
  Report Type: 
  Country: None (occurrence: None)
  Receive Date: 20101217
  Receipt Date: 20101217
  Transmission Date: 20110411
  Serious: Yes (Disabling)
  Sender: FDA-Public Use
  Company Number: None

PATIENT
  Sex: Female
  Weight: 60 kg

DRUGS (1)
  1. EBETAXEL 300MG/100ML EBEWE [Suspect]
     Indication: CHEMOTHERAPY
     Dosage: 270MG ONCE IV EVERY 21 DAYS
     Route: 042
     Dates: start: 20090504, end: 20090504

REACTIONS (3)
  - HYPOTENSION [None]
  - VERTIGO [None]
  - VOMITING [None]
